FAERS Safety Report 15215742 (Version 1)
Quarter: 2018Q3

REPORT INFORMATION
  Report Type: Spontaneous
  Country: US (occurrence: US)
  Receive Date: 20180703
  Receipt Date: 20180703
  Transmission Date: 20181010
  Serious: Yes (Hospitalization, Disabling)
  Sender: FDA-Public Use
  Company Number: None

PATIENT
  Age: 84 Year
  Sex: Female
  Weight: 60.75 kg

DRUGS (6)
  1. METOPROLOL. [Concomitant]
     Active Substance: METOPROLOL
  2. GLIPIZIDE. [Concomitant]
     Active Substance: GLIPIZIDE
  3. CILESTEROL [Concomitant]
  4. ZETIA [Concomitant]
     Active Substance: EZETIMIBE
  5. PROLIA [Suspect]
     Active Substance: DENOSUMAB
     Indication: OSTEOPOROSIS
     Dosage: 1 INJECTION EVERY 6 MONTHS; SUBCUTANEOUS
     Route: 058
     Dates: start: 20180301, end: 20180301
  6. HYDRALAZINE [Concomitant]
     Active Substance: HYDRALAZINE HYDROCHLORIDE

REACTIONS (24)
  - Spinal pain [None]
  - Eating disorder [None]
  - Malaise [None]
  - Arthralgia [None]
  - Headache [None]
  - Vertigo [None]
  - Renal failure [None]
  - Pancreatitis [None]
  - Liver injury [None]
  - Tobacco user [None]
  - Tooth abscess [None]
  - Fatigue [None]
  - Pain in jaw [None]
  - Tooth infection [None]
  - Myalgia [None]
  - Dyspnoea [None]
  - Condition aggravated [None]
  - Loss of personal independence in daily activities [None]
  - Vitreous floaters [None]
  - Blood pressure increased [None]
  - Heart rate increased [None]
  - Nausea [None]
  - Vomiting [None]
  - Bone pain [None]

NARRATIVE: CASE EVENT DATE: 20180307
